FAERS Safety Report 5226434-3 (Version None)
Quarter: 2007Q1

REPORT INFORMATION
  Report Type: 
  Country: None (occurrence: None)
  Receive Date: 20070201
  Receipt Date: 20070122
  Transmission Date: 20070707
  Serious: Yes (Hospitalization)
  Sender: FDA-Public Use
  Company Number: FR-ELI_LILLY_AND_COMPANY-FR200701004244

PATIENT
  Age: 86 Year
  Sex: Female

DRUGS (3)
  1. FORTEO [Suspect]
     Indication: OSTEOPOROSIS
     Dosage: 20 UG, DAILY (1/D)
     Route: 058
     Dates: start: 20070115, end: 20070119
  2. MOTILIUM [Concomitant]
     Indication: GASTROENTERITIS
     Dates: start: 20070114
  3. ERCEFURYL [Concomitant]
     Indication: GASTROENTERITIS
     Dates: start: 20070114

REACTIONS (4)
  - CYANOSIS [None]
  - DRUG HYPERSENSITIVITY [None]
  - FACE OEDEMA [None]
  - LIP DISORDER [None]
